FAERS Safety Report 7764393-X (Version None)
Quarter: 2011Q3

REPORT INFORMATION
  Report Type: 
  Country: None (occurrence: None)
  Receive Date: 20110921
  Receipt Date: 20110914
  Transmission Date: 20111222
  Serious: Yes (Hospitalization)
  Sender: FDA-Public Use
  Company Number: DE-SANOFI-AVENTIS-2011SA059921

PATIENT
  Age: 61 Year
  Sex: Male

DRUGS (7)
  1. AMLODIPINE BESYLATE [Concomitant]
     Indication: HYPERTENSION
     Dates: start: 20020101
  2. DIABESIN [Concomitant]
     Dates: start: 20050101
  3. OXALIPLATIN [Suspect]
     Route: 042
  4. OXALIPLATIN [Suspect]
     Route: 042
     Dates: start: 20110620
  5. CAPECITABINE [Suspect]
     Route: 048
     Dates: start: 20110620, end: 20110703
  6. CAPECITABINE [Suspect]
     Route: 048
  7. RAMIPRIL [Concomitant]
     Indication: HYPERTENSION
     Dates: start: 20030101

REACTIONS (3)
  - URINARY RETENTION [None]
  - ENTERITIS [None]
  - DIARRHOEA [None]
